FAERS Safety Report 12252510 (Version 1)
Quarter: 2016Q2

REPORT INFORMATION
  Report Type: Spontaneous
  Country: US (occurrence: US)
  Receive Date: 20160411
  Receipt Date: 20160411
  Transmission Date: 20160815
  Serious: No
  Sender: FDA-Public Use
  Company Number: US-ELI_LILLY_AND_COMPANY-US201604001818

PATIENT
  Age: 86 Year

DRUGS (3)
  1. RALOXIFENE HYDROCHLORIDE. [Suspect]
     Active Substance: RALOXIFENE HYDROCHLORIDE
     Indication: HORMONE REPLACEMENT THERAPY
     Dosage: 6 MG, QD
     Route: 065
     Dates: start: 2015
  2. EVISTA [Suspect]
     Active Substance: RALOXIFENE HYDROCHLORIDE
     Dosage: 6 MG, QD
     Route: 065
     Dates: end: 2015
  3. EVISTA [Suspect]
     Active Substance: RALOXIFENE HYDROCHLORIDE
     Indication: HORMONE REPLACEMENT THERAPY
     Dosage: 6 MG, QD
     Route: 065
     Dates: end: 2010

REACTIONS (2)
  - Alopecia [Not Recovered/Not Resolved]
  - Alopecia [Recovered/Resolved]

NARRATIVE: CASE EVENT DATE: 2010
